FAERS Safety Report 5409505-8 (Version None)
Quarter: 2007Q3

REPORT INFORMATION
  Report Type: 
  Country: None (occurrence: None)
  Receive Date: 20070807
  Receipt Date: 20070807
  Transmission Date: 20080115
  Serious: No
  Sender: FDA-Public Use
  Company Number: None

PATIENT
  Age: 63 Year
  Sex: Female
  Weight: 63.5036 kg

DRUGS (2)
  1. FLAGYL [Suspect]
     Indication: CHOLECYSTECTOMY
     Dates: start: 20061128, end: 20070601
  2. VANCOMYCIN [Suspect]
     Indication: CLOSTRIDIUM DIFFICILE COLITIS

REACTIONS (7)
  - ACTIVITIES OF DAILY LIVING IMPAIRED [None]
  - CLOSTRIDIUM DIFFICILE COLITIS [None]
  - DYSPNOEA [None]
  - IMPAIRED SELF-CARE [None]
  - NEUROPATHY PERIPHERAL [None]
  - NO THERAPEUTIC RESPONSE [None]
  - NOSOCOMIAL INFECTION [None]
